FAERS Safety Report 17274869 (Version 1)
Quarter: 2020Q1

REPORT INFORMATION
  Report Type: Spontaneous
  Country: GB (occurrence: GB)
  Receive Date: 20200116
  Receipt Date: 20200116
  Transmission Date: 20200409
  Serious: Yes (Other)
  Sender: FDA-Public Use
  Company Number: GB-TEVA-2020-GB-1167776

PATIENT
  Age: 69 Year
  Sex: Male
  Weight: 72 kg

DRUGS (9)
  1. EZETIMIBE. [Concomitant]
     Active Substance: EZETIMIBE
     Dosage: 1 DOSAGE FORMS 1 DAYS
     Dates: start: 20181030
  2. TILDIEM [Concomitant]
     Active Substance: DILTIAZEM HYDROCHLORIDE
     Dosage: 2 DOSAGE FORMS 1 DAYS
     Dates: start: 20190211
  3. SALICYLIC ACID. [Concomitant]
     Active Substance: SALICYLIC ACID
     Dosage: APPLY , 4 DOSAGE FORMS 1 DAYS
     Dates: start: 20190327
  4. DOVONEX [Concomitant]
     Active Substance: CALCIPOTRIENE
     Dosage: USE AS DIRECTED UNLESS DOVOBET REQU...2 DOSAGE FORMS 1 DAYS
     Dates: start: 20181030
  5. CELECOXIB. [Concomitant]
     Active Substance: CELECOXIB
     Dosage: 2 DOSAGE FORMS 1 DAYS
     Dates: start: 20181030
  6. CALCIPOTRIOL [Concomitant]
     Active Substance: CALCIPOTRIENE
     Dosage: APPLY OD-BD AS DIRECTED
     Dates: start: 20190405
  7. LANSOPRAZOLE. [Concomitant]
     Active Substance: LANSOPRAZOLE
     Dosage: 1 DOSAGE FORMS 1 DAYS
     Dates: start: 20190509
  8. METOCLOPRAMIDE. [Concomitant]
     Active Substance: METOCLOPRAMIDE
     Dosage: 3 DOSAGE FORMS DAILY; TAKE 3 TIMES/DAY , 1 DOSAGE FORMS
     Dates: start: 20190820
  9. GABAPENTIN. [Suspect]
     Active Substance: GABAPENTIN
     Dosage: TAKE EVERY DAY FOR 1ST WEEK, 2ND WEEK TWICE DAI... , 300 MG
     Dates: start: 20191114

REACTIONS (2)
  - Vision blurred [Unknown]
  - Visual acuity reduced [Unknown]

NARRATIVE: CASE EVENT DATE: 20191212
